FAERS Safety Report 23388102 (Version 1)
Quarter: 2024Q1

REPORT INFORMATION
  Report Type: Spontaneous
  Country: CN (occurrence: CN)
  Receive Date: 20240110
  Receipt Date: 20240110
  Transmission Date: 20240410
  Serious: Yes (Other)
  Sender: FDA-Public Use
  Company Number: CN-PFIZER INC-PV202400002042

PATIENT
  Age: 67 Year
  Sex: Female
  Weight: 44 kg

DRUGS (2)
  1. VFEND [Suspect]
     Active Substance: VORICONAZOLE
     Indication: Lymphoma
     Dosage: 1000 MG, 1X/DAY
     Route: 041
     Dates: start: 20230919, end: 20230920
  2. OBINUTUZUMAB [Concomitant]
     Active Substance: OBINUTUZUMAB
     Indication: Lymphoma
     Dosage: 1000 MG
     Route: 041
     Dates: start: 20230919

REACTIONS (1)
  - Myelosuppression [Unknown]

NARRATIVE: CASE EVENT DATE: 20231030
